FAERS Safety Report 17472481 (Version 2)
Quarter: 2023Q1

REPORT INFORMATION
  Report Type: Spontaneous
  Country: PL (occurrence: PL)
  Receive Date: 20200228
  Receipt Date: 20230308
  Transmission Date: 20230418
  Serious: Yes (Life-Threatening, Hospitalization, Other)
  Sender: FDA-Public Use
  Company Number: None

PATIENT
  Age: 44 Year
  Sex: Male
  Weight: 72 kg

DRUGS (9)
  1. MYCOPHENOLATE MOFETIL [Suspect]
     Active Substance: MYCOPHENOLATE MOFETIL
     Indication: Transplant rejection
     Dosage: UNK, STARTED ON 20-JUL-1999
     Route: 065
     Dates: end: 20150217
  2. MYCOPHENOLATE MOFETIL [Suspect]
     Active Substance: MYCOPHENOLATE MOFETIL
     Indication: Immunosuppressant drug therapy
  3. PREDNISOLONE [Suspect]
     Active Substance: PREDNISOLONE
     Indication: Transplant rejection
     Dosage: 5 MILLIGRAM, QD, STARTED ON 22 JUL 1999
     Route: 065
  4. PREDNISOLONE [Suspect]
     Active Substance: PREDNISOLONE
     Indication: Immunosuppressant drug therapy
     Dosage: UNK (DOSE REDUCED), STARTED ON 22 JUL 1999
     Route: 065
     Dates: end: 20031210
  5. PREDNISOLONE [Suspect]
     Active Substance: PREDNISOLONE
     Dosage: 5 MILLIGRAM,QD, STARTED ON 19 MAY 2015
     Route: 065
  6. CYCLOSPORINE [Suspect]
     Active Substance: CYCLOSPORINE
     Indication: Transplant rejection
     Dosage: 25 MILLIGRAM, EVERY 12 HRS, STARTED ON 20-JUL-1999
     Route: 065
     Dates: end: 20151028
  7. CYCLOSPORINE [Suspect]
     Active Substance: CYCLOSPORINE
     Indication: Immunosuppressant drug therapy
     Dosage: 25 MILLIGRAM, UNK, STARTED ON 03-JAN-2016
     Route: 065
  8. METHYLPREDNISOLONE [Suspect]
     Active Substance: METHYLPREDNISOLONE
     Indication: Transplant rejection
     Dosage: UNK, PULSES
     Route: 065
  9. METHYLPREDNISOLONE [Suspect]
     Active Substance: METHYLPREDNISOLONE
     Indication: Immunosuppressant drug therapy

REACTIONS (39)
  - Hyperkinetic heart syndrome [Recovered/Resolved]
  - Aortic stenosis [Recovered/Resolved]
  - Aortic valve disease mixed [Recovered/Resolved]
  - Aortic valve incompetence [Recovered/Resolved]
  - Chronic allograft nephropathy [Not Recovered/Not Resolved]
  - Emphysema [Recovered/Resolved]
  - Cardiac failure chronic [Recovered/Resolved]
  - Oral herpes [Recovered/Resolved]
  - Pleural effusion [Recovered/Resolved]
  - Pyrexia [Recovered/Resolved]
  - Cytomegalovirus infection reactivation [Recovered/Resolved]
  - Lung abscess [Recovered/Resolved]
  - Staphylococcal sepsis [Recovered/Resolved]
  - Transplant failure [Recovered/Resolved]
  - Staphylococcal infection [Recovered/Resolved]
  - Leukocytosis [Recovered/Resolved]
  - Pulmonary hypertension [Recovered/Resolved]
  - Epstein-Barr virus infection [Unknown]
  - Bronchitis bacterial [Recovered/Resolved]
  - Pneumonia [Recovered/Resolved]
  - Chronic kidney disease [Recovered/Resolved]
  - Endocarditis [Recovered/Resolved]
  - Encephalitis fungal [Unknown]
  - Orthopnoea [Recovered/Resolved]
  - Hodgkin^s disease [Unknown]
  - Ascites [Recovered/Resolved]
  - Transplant rejection [Unknown]
  - Malaise [Unknown]
  - Cardiac murmur [Unknown]
  - Dyspnoea [Unknown]
  - Oedema peripheral [Unknown]
  - Splenomegaly [Recovered/Resolved]
  - C-reactive protein increased [Recovered/Resolved]
  - Tachycardia [Recovered/Resolved]
  - Anaemia [Recovered/Resolved]
  - Blood bilirubin increased [Recovered/Resolved]
  - Ventricular hypokinesia [Unknown]
  - Tooth loss [Unknown]
  - Left ventricular enlargement [Unknown]

NARRATIVE: CASE EVENT DATE: 20081001
